FAERS Safety Report 7987831-6 (Version None)
Quarter: 2011Q4

REPORT INFORMATION
  Report Type: 
  Country: None (occurrence: None)
  Receive Date: 20111216
  Receipt Date: 20110506
  Transmission Date: 20120403
  Serious: No
  Sender: FDA-Public Use
  Company Number: US-BRISTOL-MYERS SQUIBB COMPANY-15724446

PATIENT
  Age: 7 Year
  Sex: Female

DRUGS (2)
  1. ABILIFY [Suspect]
     Indication: POST-TRAUMATIC STRESS DISORDER
     Dates: end: 20110415
  2. ZOLOFT [Suspect]
     Indication: POST-TRAUMATIC STRESS DISORDER

REACTIONS (3)
  - LETHARGY [None]
  - AGGRESSION [None]
  - WEIGHT INCREASED [None]
